FAERS Safety Report 4782744-5 (Version None)
Quarter: 2005Q3

REPORT INFORMATION
  Report Type: 
  Country: None (occurrence: None)
  Receive Date: 20050929
  Receipt Date: 20050110
  Transmission Date: 20060218
  Serious: No
  Sender: FDA-Public Use
  Company Number: 418107

PATIENT
  Age: 58 Year
  Sex: Male

DRUGS (11)
  1. COREG [Suspect]
     Dosage: 3.125MG SINGLE DOSE
     Route: 048
     Dates: start: 20041129, end: 20041129
  2. ASPIRIN [Concomitant]
     Dosage: 81MG PER DAY
  3. PRILOSEC [Concomitant]
     Dosage: 20MG PER DAY
  4. FUROSEMIDE [Concomitant]
     Dosage: 40MG PER DAY
  5. CAPTOPRIL [Concomitant]
     Dosage: 25MG TWICE PER DAY
  6. LIPITOR [Concomitant]
     Dosage: 20MG PER DAY
  7. SPIRONOLACTONE [Concomitant]
     Dosage: 25MG TWICE PER DAY
  8. HUMULIN [Concomitant]
     Dosage: 41U PER DAY
  9. TARKA [Concomitant]
  10. MAVIK [Concomitant]
     Dosage: 2MG PER DAY
  11. ACTOS [Concomitant]
     Dosage: 45MG PER DAY

REACTIONS (1)
  - ADVERSE EVENT [None]
